FAERS Safety Report 22927033 (Version 2)
Quarter: 2023Q4

REPORT INFORMATION
  Report Type: Spontaneous
  Country: US (occurrence: US)
  Receive Date: 20230911
  Receipt Date: 20231003
  Transmission Date: 20240110
  Serious: No
  Sender: FDA-Public Use
  Company Number: US-IHL-000371

PATIENT
  Age: 67 Year
  Sex: Female
  Weight: 58 kg

DRUGS (6)
  1. TOLTERODINE [Suspect]
     Active Substance: TOLTERODINE
     Indication: Urinary incontinence
     Dosage: MANUFACTURING DATE: 11/29/2022, PHARMACY INVOICE DATE FOR THIS LOT NUMBER: 08/27/2023, PACK: 30 CAP
     Route: 048
     Dates: start: 202207
  2. TOLTERODINE [Suspect]
     Active Substance: TOLTERODINE
     Indication: Nutritional supplementation
     Dosage: MANUFACTURING DATE: 11/29/2022, PHARMACY INVOICE DATE FOR THIS LOT NUMBER: 08/27/2023, PACK: 30 CAP
     Route: 048
     Dates: start: 202207
  3. VITAMINS [Concomitant]
     Active Substance: VITAMINS
     Indication: Product used for unknown indication
     Route: 065
  4. CALCIUM [Concomitant]
     Active Substance: CALCIUM
     Indication: Product used for unknown indication
     Route: 065
  5. LEXAPRO [Concomitant]
     Active Substance: ESCITALOPRAM OXALATE
     Indication: Product used for unknown indication
     Route: 065
  6. ESTRADIOL [Concomitant]
     Active Substance: ESTRADIOL
     Indication: Product used for unknown indication
     Route: 065

REACTIONS (1)
  - Therapeutic product effect decreased [Not Recovered/Not Resolved]
